FAERS Safety Report 17688512 (Version 1)
Quarter: 2020Q2

REPORT INFORMATION
  Report Type: Spontaneous
  Country: US (occurrence: US)
  Receive Date: 20200421
  Receipt Date: 20200421
  Transmission Date: 20200714
  Serious: Yes (Hospitalization)
  Sender: FDA-Public Use
  Company Number: US-009507513-2004USA005360

PATIENT
  Age: 67 Year
  Sex: Female
  Weight: 35.6 kg

DRUGS (6)
  1. IFOSFAMIDE. [Suspect]
     Active Substance: IFOSFAMIDE
     Indication: ANGIOCENTRIC LYMPHOMA
     Dosage: UNK, STANDARD OF CARE
     Route: 042
     Dates: start: 20180124, end: 20180522
  2. ETOPOSIDE. [Suspect]
     Active Substance: ETOPOSIDE
     Indication: ANGIOCENTRIC LYMPHOMA
     Dosage: UNK, STANDARD OF CARE
     Route: 042
     Dates: start: 20180124, end: 20180522
  3. MESNA. [Suspect]
     Active Substance: MESNA
     Indication: ANGIOCENTRIC LYMPHOMA
     Dosage: UNK, STANDARD OF CARE
     Route: 042
     Dates: start: 20180124, end: 20180522
  4. METHOTREXATE. [Suspect]
     Active Substance: METHOTREXATE
     Indication: ANGIOCENTRIC LYMPHOMA
     Dosage: UNK, STANDARD OF CARE
     Route: 042
     Dates: start: 20180124, end: 20180522
  5. LEUCOVORIN. [Suspect]
     Active Substance: LEUCOVORIN
     Indication: ANGIOCENTRIC LYMPHOMA
     Dosage: UNK, STANDARD OF CARE
     Route: 042
     Dates: start: 20180124, end: 20180522
  6. DECADRON [Suspect]
     Active Substance: DEXAMETHASONE
     Indication: ANGIOCENTRIC LYMPHOMA
     Dosage: UNK, STANDARD OF CARE
     Route: 042
     Dates: start: 20180124, end: 20180522

REACTIONS (3)
  - Oral candidiasis [Recovering/Resolving]
  - Oral herpes [Recovering/Resolving]
  - Mucosal inflammation [Recovering/Resolving]

NARRATIVE: CASE EVENT DATE: 20180204
